FAERS Safety Report 4643363-4 (Version None)
Quarter: 2005Q2

REPORT INFORMATION
  Report Type: 
  Country: None (occurrence: None)
  Receive Date: 20050422
  Receipt Date: 20050408
  Transmission Date: 20051028
  Serious: Yes (Hospitalization, Other)
  Sender: FDA-Public Use
  Company Number: HQWYE316709NOV04

PATIENT
  Age: 46 Year
  Sex: Male
  Weight: 84 kg

DRUGS (20)
  1. RAPAMUNE [Suspect]
     Indication: PROPHYLAXIS AGAINST TRANSPLANT REJECTION
     Dosage: SEE IMAGE
     Route: 048
     Dates: start: 20040530, end: 20040531
  2. RAPAMUNE [Suspect]
     Indication: PROPHYLAXIS AGAINST TRANSPLANT REJECTION
     Dosage: SEE IMAGE
     Route: 048
     Dates: start: 20040601, end: 20040611
  3. RAPAMUNE [Suspect]
     Indication: PROPHYLAXIS AGAINST TRANSPLANT REJECTION
     Dosage: SEE IMAGE
     Route: 048
     Dates: start: 20040612, end: 20040614
  4. RAPAMUNE [Suspect]
     Indication: PROPHYLAXIS AGAINST TRANSPLANT REJECTION
     Dosage: SEE IMAGE
     Route: 048
     Dates: start: 20040615, end: 20040616
  5. NEORAL [Concomitant]
  6. FUROSEMIDE [Concomitant]
  7. MINOXIDIL [Concomitant]
  8. BACTRIM DS [Concomitant]
  9. ESOMEPRAZOLE (ESOMEPRAZOLE) [Concomitant]
  10. LIPITOR [Concomitant]
  11. IMDUR [Concomitant]
  12. ASPIRIN [Concomitant]
  13. DILANTIN [Concomitant]
  14. PERCOCET (OXYCODONE HYDROCHLORIDE/OXYCODONE TEREPHTHALMATE/PARACETAMOL [Concomitant]
  15. TENORMIN [Concomitant]
  16. METRONIDAZOLE [Concomitant]
  17. NYSTATIN [Concomitant]
  18. SYNTHROID [Concomitant]
  19. PROTONIX [Concomitant]
  20. METAMUCIL-2 [Concomitant]

REACTIONS (13)
  - ALPHA HAEMOLYTIC STREPTOCOCCAL INFECTION [None]
  - ARTHRALGIA [None]
  - BACTERIA SPUTUM IDENTIFIED [None]
  - BONE DISORDER [None]
  - ELECTROCARDIOGRAM T WAVE INVERSION [None]
  - FUNGUS SPUTUM TEST POSITIVE [None]
  - MYOSITIS [None]
  - NECK PAIN [None]
  - PAIN IN JAW [None]
  - SINUS DISORDER [None]
  - SKULL X-RAY ABNORMAL [None]
  - VASCULAR CALCIFICATION [None]
  - X-RAY LIMB ABNORMAL [None]
